FAERS Safety Report 8324993-5 (Version None)
Quarter: 2012Q2

REPORT INFORMATION
  Report Type: 
  Country: None (occurrence: None)
  Receive Date: 20120501
  Receipt Date: 20100311
  Transmission Date: 20120825
  Serious: No
  Sender: FDA-Public Use
  Company Number: US-TEVA-2010001442

PATIENT
  Sex: Male

DRUGS (3)
  1. NUVIGIL [Suspect]
     Route: 048
     Dates: start: 20100201, end: 20100201
  2. NUVIGIL [Suspect]
     Route: 048
     Dates: start: 20100308
  3. ROGAINE [Concomitant]
     Indication: ALOPECIA

REACTIONS (1)
  - ALOPECIA [None]
